FAERS Safety Report 9737268 (Version 1)
Quarter: 2013Q4

REPORT INFORMATION
  Report Type: Spontaneous
  Country: US (occurrence: US)
  Receive Date: 20131206
  Receipt Date: 20131206
  Transmission Date: 20140711
  Serious: Yes (Other)
  Sender: FDA-Public Use
  Company Number: US-ASTRAZENECA-2013SE88906

PATIENT
  Age: 55 Year
  Sex: Male

DRUGS (12)
  1. ESOMEPRAZOLE [Suspect]
     Indication: GASTROOESOPHAGEAL REFLUX DISEASE
     Route: 048
  2. MONTELUKAST SODIUM [Suspect]
     Indication: MASTOCYTOSIS
     Route: 048
  3. DOXEPIN HCL [Suspect]
     Indication: MASTOCYTOSIS
  4. LORAZEPAM [Suspect]
     Indication: MASTOCYTOSIS
  5. SODIUM CROMOGLICATE [Suspect]
     Indication: MASTOCYTOSIS
  6. IMATINIB [Suspect]
     Indication: MASTOCYTOSIS
  7. KETOTIFEN [Suspect]
     Indication: MASTOCYTOSIS
  8. CLONAZEPAM [Suspect]
     Indication: MASTOCYTOSIS
  9. QUERCETIN [Suspect]
     Indication: MASTOCYTOSIS
  10. LORATADINE [Concomitant]
  11. FAMOTIDINE [Concomitant]
  12. ASPIRIN [Concomitant]

REACTIONS (1)
  - Drug intolerance [Unknown]
